FAERS Safety Report 5722096-7 (Version None)
Quarter: 2008Q2

REPORT INFORMATION
  Report Type: 
  Country: None (occurrence: None)
  Receive Date: 20080429
  Receipt Date: 20070504
  Transmission Date: 20081010
  Serious: No
  Sender: FDA-Public Use
  Company Number: US-ASTRAZENECA-2007UW10614

PATIENT
  Age: 77 Year
  Sex: Female
  Weight: 37.2 kg

DRUGS (6)
  1. NEXIUM [Suspect]
     Indication: GASTROOESOPHAGEAL REFLUX DISEASE
     Route: 048
  2. NEXIUM [Suspect]
     Dosage: SAMPLE PACK
     Route: 048
     Dates: start: 20070503
  3. BLOOD PRESSURE MEDICATION [Concomitant]
  4. IRON [Concomitant]
  5. ASPIRIN [Concomitant]
  6. MULTI-VITAMIN [Concomitant]

REACTIONS (2)
  - BONE PAIN [None]
  - PYREXIA [None]
